FAERS Safety Report 25281372 (Version 1)
Quarter: 2025Q2

REPORT INFORMATION
  Report Type: Spontaneous
  Country: EG (occurrence: EG)
  Receive Date: 20250508
  Receipt Date: 20250508
  Transmission Date: 20250717
  Serious: Yes (Other)
  Sender: HIKMA
  Company Number: EG-HIKMA PHARMACEUTICALS-EG-H14001-25-04036

PATIENT
  Age: 71 Year
  Sex: Female
  Weight: 74 kg

DRUGS (4)
  1. PACLITAXEL [Suspect]
     Active Substance: PACLITAXEL
     Indication: Breast cancer
     Dosage: 127.5 MILLIGRAM, WEEKLY, WEEK 12 BY 2 HOURS
     Route: 042
     Dates: start: 20250219
  2. PACLITAXEL [Suspect]
     Active Substance: PACLITAXEL
     Dosage: 127.5 MILLIGRAM, WEEKLY, WEEK 12 BY 2 HOURS
     Route: 042
     Dates: start: 20250219
  3. CARBOPLATIN [Concomitant]
     Active Substance: CARBOPLATIN
     Indication: Breast cancer
     Dosage: 404 MILLIGRAM, WEEKLY, WEEK 12 BY 2 HOURS
     Route: 042
     Dates: start: 20250219
  4. CARVEDILOL [Concomitant]
     Active Substance: CARVEDILOL
     Indication: Hypertension
     Route: 065

REACTIONS (7)
  - Alanine aminotransferase increased [Recovered/Resolved]
  - Leukopenia [Recovered/Resolved]
  - Neuropathy peripheral [Recovered/Resolved]
  - Malaise [Recovered/Resolved]
  - Rash [Recovered/Resolved]
  - Oedema peripheral [Recovered/Resolved]
  - Neutropenia [Recovered/Resolved]

NARRATIVE: CASE EVENT DATE: 20250324
